FAERS Safety Report 11113127 (Version 1)
Quarter: 2015Q2

REPORT INFORMATION
  Report Type: Spontaneous
  Country: US (occurrence: US)
  Receive Date: 20150514
  Receipt Date: 20150514
  Transmission Date: 20150821
  Serious: No
  Sender: FDA-Public Use
  Company Number: US-LUNDBECK-DKLU1110888

PATIENT
  Age: 69 Year
  Sex: Male

DRUGS (2)
  1. NORTHERA [Suspect]
     Active Substance: DROXIDOPA
     Route: 065
     Dates: start: 20150329
  2. NORTHERA [Suspect]
     Active Substance: DROXIDOPA
     Indication: PRODUCT USED FOR UNKNOWN INDICATION
     Route: 065
     Dates: start: 20150327

REACTIONS (6)
  - Hyperhidrosis [Unknown]
  - Tremor [Unknown]
  - Hypokinesia [Unknown]
  - Confusional state [Unknown]
  - Speech disorder [Unknown]
  - Chills [Unknown]

NARRATIVE: CASE EVENT DATE: 20150329
